FAERS Safety Report 5681128-5 (Version None)
Quarter: 2008Q1

REPORT INFORMATION
  Report Type: 
  Country: None (occurrence: None)
  Receive Date: 20080325
  Receipt Date: 20080311
  Transmission Date: 20080703
  Serious: Yes (Life-Threatening, Other)
  Sender: FDA-Public Use
  Company Number: 2008000357

PATIENT
  Age: 44 Year
  Sex: Male

DRUGS (6)
  1. TARCEVA [Suspect]
     Indication: LUNG ADENOCARCINOMA
     Dosage: 150 MG, QD, ORAL, 150 MG, Q2 DAY, ORAL
     Route: 048
     Dates: start: 20080128, end: 20080206
  2. TARCEVA [Suspect]
     Indication: LUNG ADENOCARCINOMA
     Dosage: 150 MG, QD, ORAL, 150 MG, Q2 DAY, ORAL
     Route: 048
     Dates: start: 20080111
  3. TARCEVA [Suspect]
     Indication: LUNG ADENOCARCINOMA
     Dosage: 150 MG, QD, ORAL, 150 MG, Q2 DAY, ORAL
     Route: 048
     Dates: start: 20080207
  4. BEVACIZUMAB (INJECTION FOR INFUSION) [Suspect]
     Indication: LUNG ADENOCARCINOMA
     Dosage: 15 MG/KG, Q21 DAY, INTRAVENOUS, 5 MG/KG, Q14 DAY, INTRAVENOUS
     Route: 042
     Dates: start: 20070412
  5. BEVACIZUMAB (INJECTION FOR INFUSION) [Suspect]
     Indication: LUNG ADENOCARCINOMA
     Dosage: 15 MG/KG, Q21 DAY, INTRAVENOUS, 5 MG/KG, Q14 DAY, INTRAVENOUS
     Route: 042
     Dates: start: 20080126
  6. GEMCITABINE (GEMICITABINE) [Concomitant]

REACTIONS (2)
  - DRUG INTERACTION [None]
  - PARALYSIS [None]
